FAERS Safety Report 5054609-5 (Version None)
Quarter: 2006Q2

REPORT INFORMATION
  Report Type: 
  Country: None (occurrence: None)
  Receive Date: 20060614
  Receipt Date: 20060426
  Transmission Date: 20061013
  Serious: Yes (Other)
  Sender: FDA-Public Use
  Company Number: 446151

PATIENT
  Sex: Female

DRUGS (7)
  1. BONIVA [Suspect]
     Indication: OSTEOPOROSIS
     Dosage: 150 MG 1 PER MONTH ORAL
     Route: 048
  2. SYNTHROID [Concomitant]
  3. LISINOPRIL [Concomitant]
  4. METOPROLOL (METOPROLOL) [Concomitant]
  5. ASPIRIN [Concomitant]
  6. MULTIVITAMIN [Concomitant]
  7. CALCIUM (CALCIUM) [Concomitant]

REACTIONS (1)
  - ARTHRALGIA [None]
